FAERS Safety Report 12177261 (Version 2)
Quarter: 2016Q1

REPORT INFORMATION
  Report Type: Report from Study
  Country: CA (occurrence: CA)
  Receive Date: 20160315
  Receipt Date: 20160322
  Transmission Date: 20160526
  Serious: Yes (Other)
  Sender: FDA-Public Use
  Company Number: CA-ROCHE-1205072

PATIENT
  Age: 71 Year
  Sex: Female
  Weight: 63 kg

DRUGS (10)
  1. PREDNISONE. [Concomitant]
     Active Substance: PREDNISONE
  2. SYNTHROID [Concomitant]
     Active Substance: LEVOTHYROXINE SODIUM
  3. JANUVIA [Concomitant]
     Active Substance: SITAGLIPTIN PHOSPHATE
  4. ATORVASTATIN [Concomitant]
     Active Substance: ATORVASTATIN
  5. METOPROLOL. [Concomitant]
     Active Substance: METOPROLOL
  6. METFORMIN [Concomitant]
     Active Substance: METFORMIN HYDROCHLORIDE
  7. NORMAL SALINE [Suspect]
     Active Substance: SODIUM CHLORIDE
     Indication: PRODUCT USED FOR UNKNOWN INDICATION
     Route: 042
  8. ACTEMRA [Suspect]
     Active Substance: TOCILIZUMAB
     Route: 042
     Dates: start: 20120803
  9. ACTEMRA [Suspect]
     Active Substance: TOCILIZUMAB
     Indication: RHEUMATOID ARTHRITIS
     Route: 042
     Dates: start: 20111116
  10. LIPITOR [Concomitant]
     Active Substance: ATORVASTATIN CALCIUM

REACTIONS (16)
  - Urinary tract infection [Recovered/Resolved]
  - Heart rate decreased [Unknown]
  - Pneumonia [Recovering/Resolving]
  - Infection [Not Recovered/Not Resolved]
  - Influenza [Unknown]
  - Fall [Unknown]
  - Balance disorder [Unknown]
  - Hypotension [Unknown]
  - Productive cough [Unknown]
  - Blood pressure diastolic decreased [Unknown]
  - Blood pressure increased [Unknown]
  - Influenza [Not Recovered/Not Resolved]
  - Weight increased [Unknown]
  - Blood pressure increased [Unknown]
  - Malaise [Unknown]
  - Injection site extravasation [Recovered/Resolved]

NARRATIVE: CASE EVENT DATE: 20130318
